FAERS Safety Report 6589920-X (Version None)
Quarter: 2010Q1

REPORT INFORMATION
  Report Type: 
  Country: None (occurrence: None)
  Receive Date: 20100219
  Receipt Date: 20100215
  Transmission Date: 20100710
  Serious: Yes (Death, Hospitalization)
  Sender: FDA-Public Use
  Company Number: GB-ELI_LILLY_AND_COMPANY-GB201002003897

PATIENT
  Sex: Male
  Weight: 90 kg

DRUGS (5)
  1. GEMCITABINE HCL [Suspect]
     Indication: DIFFUSE LARGE B-CELL LYMPHOMA
     Dosage: 1800 MG, ONCE ON DAY ONE AND EIGHT
     Dates: start: 20100106
  2. CYCLOPHOSPHAMIDE [Suspect]
     Indication: DIFFUSE LARGE B-CELL LYMPHOMA
     Dosage: 1600 MG, ONCE ON DAY ONE
     Dates: start: 20100106
  3. VINCRISTINE SULFATE [Suspect]
     Indication: DIFFUSE LARGE B-CELL LYMPHOMA
     Dosage: 2 MG, ONCE ON DAY ONE
     Dates: start: 20100106
  4. RITUXIMAB [Suspect]
     Indication: DIFFUSE LARGE B-CELL LYMPHOMA
     Dosage: 800 MG, ONCE ON DAY ONE
     Dates: start: 20100106
  5. OTHER PHARMA COMPANY INV DRUG [Suspect]
     Indication: DIFFUSE LARGE B-CELL LYMPHOMA
     Dosage: 100 MG FOR FIVE DAYS.
     Dates: start: 20100106

REACTIONS (1)
  - PULMONARY TOXICITY [None]
